FAERS Safety Report 5652541-7 (Version None)
Quarter: 2008Q1

REPORT INFORMATION
  Report Type: 
  Country: None (occurrence: None)
  Receive Date: 20080131
  Receipt Date: 20071107
  Transmission Date: 20080703
  Serious: No
  Sender: FDA-Public Use
  Company Number: US200711002018

PATIENT
  Age: 51 Year
  Sex: Female
  Weight: 90.7 kg

DRUGS (5)
  1. BYETTA [Suspect]
     Indication: TYPE 2 DIABETES MELLITUS
     Dosage: 5 UG, 2/D, SUBCUTANEOUS
     Route: 058
     Dates: start: 20070501
  2. AVANDAMET [Concomitant]
  3. ACTOS    /AUS/ (PIOGLITAZONE HYDROCHLORIDE) [Concomitant]
  4. GLIPIZIDE [Concomitant]
  5. METFORMIN HCL [Concomitant]

REACTIONS (11)
  - ARTHRALGIA [None]
  - BACK PAIN [None]
  - BLOOD GLUCOSE INCREASED [None]
  - BRONCHITIS [None]
  - CHEST DISCOMFORT [None]
  - HUMAN BITE [None]
  - NAUSEA [None]
  - NIGHT BLINDNESS [None]
  - RETCHING [None]
  - VISION BLURRED [None]
  - VISUAL ACUITY REDUCED [None]
